FAERS Safety Report 5743007-4 (Version None)
Quarter: 2008Q2

REPORT INFORMATION
  Report Type: 
  Country: None (occurrence: None)
  Receive Date: 20080519
  Receipt Date: 20080515
  Transmission Date: 20081010
  Serious: Yes (Death)
  Sender: FDA-Public Use
  Company Number: ES-SANOFI-SYNTHELABO-F01200800819

PATIENT
  Sex: Male
  Weight: 78 kg

DRUGS (2)
  1. OXALIPLATIN [Suspect]
     Route: 042
  2. XELODA [Suspect]
     Route: 048

REACTIONS (1)
  - ACUTE MYOCARDIAL INFARCTION [None]
